FAERS Safety Report 8492893-6 (Version None)
Quarter: 2012Q3

REPORT INFORMATION
  Report Type: 
  Country: None (occurrence: None)
  Receive Date: 20120706
  Receipt Date: 20120629
  Transmission Date: 20120928
  Serious: Yes (Hospitalization)
  Sender: FDA-Public Use
  Company Number: US-GLAXOSMITHKLINE-A0816829A

PATIENT
  Age: 71 Year
  Sex: Male

DRUGS (5)
  1. PLETAL [Concomitant]
  2. AVANDIA [Suspect]
     Indication: TYPE 2 DIABETES MELLITUS
     Dosage: 4MG PER DAY
     Route: 048
  3. ASPIRIN [Concomitant]
  4. LOPID [Concomitant]
  5. ZOCOR [Concomitant]

REACTIONS (1)
  - CEREBROVASCULAR ACCIDENT [None]
